FAERS Safety Report 6564804-1 (Version None)
Quarter: 2010Q1

REPORT INFORMATION
  Report Type: 
  Country: None (occurrence: None)
  Receive Date: 20100201
  Receipt Date: 20100120
  Transmission Date: 20100710
  Serious: Yes (Other)
  Sender: FDA-Public Use
  Company Number: DE-PFIZER INC-2010007572

PATIENT
  Age: 63 Year
  Sex: Male

DRUGS (3)
  1. GEVILON [Suspect]
     Indication: DYSLIPIDAEMIA
     Dosage: 900 MG, EVERY DAY
     Route: 048
     Dates: start: 20080101
  2. ALLOPURINOL [Concomitant]
  3. TERNORMIN [Concomitant]
     Indication: HYPERTENSION

REACTIONS (2)
  - RETINAL DEPOSITS [None]
  - VISUAL ACUITY REDUCED [None]
